FAERS Safety Report 4907986-7 (Version None)
Quarter: 2006Q1

REPORT INFORMATION
  Report Type: 
  Country: None (occurrence: None)
  Receive Date: 20060208
  Receipt Date: 20060124
  Transmission Date: 20060701
  Serious: Yes (Other)
  Sender: FDA-Public Use
  Company Number: 099241

PATIENT
  Age: 40 Year
  Sex: Female

DRUGS (2)
  1. HERCEPTIN (TRASTUZUMAB) PWDER + SOLVENT, INFUSION SOLN [Suspect]
     Indication: BREAST CANCER METASTATIC
     Dosage: 225 MG, 1/WEEK, INTRAVENOUS
     Route: 042
  2. PACLITAXEL [Suspect]
     Indication: BREAST CANCER METASTATIC
     Dosage: 160 MG, 1/WEEK, INTRAVENOUS
     Route: 042

REACTIONS (7)
  - BIOPSY SKIN ABNORMAL [None]
  - BLISTER [None]
  - OEDEMA [None]
  - ONYCHOLYSIS [None]
  - PHOTOSENSITIVITY REACTION [None]
  - RASH ERYTHEMATOUS [None]
  - SKIN HYPERPIGMENTATION [None]
